FAERS Safety Report 7493754-1 (Version None)
Quarter: 2011Q2

REPORT INFORMATION
  Report Type: 
  Country: None (occurrence: None)
  Receive Date: 20110520
  Receipt Date: 20110310
  Transmission Date: 20111010
  Serious: No
  Sender: FDA-Public Use
  Company Number: US-ASTRAZENECA-2011SE13930

PATIENT
  Age: 58 Year
  Sex: Male

DRUGS (4)
  1. LORTAB [Concomitant]
  2. SOMA [Concomitant]
  3. VIMOVO [Suspect]
     Indication: LUMBAR SPINAL STENOSIS
     Route: 048
  4. CYMBALTA [Concomitant]

REACTIONS (3)
  - GASTROOESOPHAGEAL REFLUX DISEASE [None]
  - VOMITING [None]
  - HAEMATOCHEZIA [None]
